FAERS Safety Report 18736339 (Version 2)
Quarter: 2021Q1

REPORT INFORMATION
  Report Type: Spontaneous
  Country: US (occurrence: US)
  Receive Date: 20210113
  Receipt Date: 20210121
  Transmission Date: 20210419
  Serious: Yes (Other)
  Sender: FDA-Public Use
  Company Number: US-UCBSA-2021001279

PATIENT
  Age: 60 Year
  Sex: Male

DRUGS (5)
  1. PREDNISONE. [Concomitant]
     Active Substance: PREDNISONE
     Indication: COLITIS ULCERATIVE
  2. CIMZIA [Suspect]
     Active Substance: CERTOLIZUMAB PEGOL
     Indication: RHEUMATOID ARTHRITIS
     Dosage: UNK
  3. PREDNISONE. [Concomitant]
     Active Substance: PREDNISONE
     Indication: RHEUMATOID ARTHRITIS
     Dosage: UNK
  4. CIMZIA [Suspect]
     Active Substance: CERTOLIZUMAB PEGOL
     Indication: OFF LABEL USE
  5. CIMZIA [Suspect]
     Active Substance: CERTOLIZUMAB PEGOL
     Indication: COLITIS ULCERATIVE

REACTIONS (3)
  - IgM nephropathy [Unknown]
  - Off label use [Unknown]
  - Chronic active Epstein-Barr virus infection [Unknown]
